FAERS Safety Report 15861995 (Version 1)
Quarter: 2019Q1

REPORT INFORMATION
  Report Type: Spontaneous
  Country: BR (occurrence: BR)
  Receive Date: 20190124
  Receipt Date: 20190124
  Transmission Date: 20190417
  Serious: Yes (Hospitalization, Other)
  Sender: FDA-Public Use
  Company Number: BR-SCIEGEN PHARMACEUTICALS INC-2019SCILIT00004

PATIENT

DRUGS (10)
  1. CLOPIDOGREL [Suspect]
     Active Substance: CLOPIDOGREL BISULFATE
     Indication: PRODUCT USED FOR UNKNOWN INDICATION
     Dosage: 600 MG LOADING DOSE
     Route: 048
  2. ASPIRIN. [Concomitant]
     Active Substance: ASPIRIN
     Indication: PRODUCT USED FOR UNKNOWN INDICATION
     Dosage: 200 MG, UNK
  3. HEPARIN [Concomitant]
     Active Substance: HEPARIN SODIUM
     Dosage: UNK
     Route: 065
  4. ABCIXIMAB [Concomitant]
     Active Substance: ABCIXIMAB
     Indication: PRODUCT USED FOR UNKNOWN INDICATION
     Dosage: TWO 5 MG LOADING DOSES OLLOWED BY A CONTINUOUS INFUSION DURING THE NEXT 12 HOURS
     Route: 065
  5. ATORVASTATIN [Concomitant]
     Active Substance: ATORVASTATIN
     Indication: DYSLIPIDAEMIA
     Dosage: UNK
     Route: 065
  6. CANDESARTAN. [Concomitant]
     Active Substance: CANDESARTAN
     Indication: HYPERTENSION
     Dosage: UNK
     Route: 065
  7. CLOPIDOGREL [Suspect]
     Active Substance: CLOPIDOGREL BISULFATE
     Indication: CHEST PAIN
     Dosage: 75 MG
  8. ASPIRIN. [Concomitant]
     Active Substance: ASPIRIN
     Dosage: 100 MG, UNK
  9. HEPARIN [Concomitant]
     Active Substance: HEPARIN SODIUM
     Indication: PRODUCT USED FOR UNKNOWN INDICATION
     Dosage: 5,000 U
  10. ABCIXIMAB [Concomitant]
     Active Substance: ABCIXIMAB
     Dosage: UNK
     Route: 065

REACTIONS (1)
  - Kounis syndrome [Recovered/Resolved]
